FAERS Safety Report 5055826-0 (Version None)
Quarter: 2006Q3

REPORT INFORMATION
  Report Type: 
  Country: None (occurrence: None)
  Receive Date: 20060720
  Receipt Date: 20060609
  Transmission Date: 20061208
  Serious: Yes (Other)
  Sender: FDA-Public Use
  Company Number: PHBS2006JP08785

PATIENT
  Age: 68 Year
  Sex: Female

DRUGS (2)
  1. VOLTAREN [Suspect]
     Route: 048
  2. VOLTAREN [Suspect]
     Route: 054

REACTIONS (1)
  - HYPOGLYCAEMIA [None]
